FAERS Safety Report 19806835 (Version 24)
Quarter: 2025Q3

REPORT INFORMATION
  Report Type: Report from Study
  Country: US (occurrence: US)
  Receive Date: 20210908
  Receipt Date: 20250902
  Transmission Date: 20251020
  Serious: Yes (Other)
  Sender: TAKEDA
  Company Number: US-TAKEDA-2021TUS023644

PATIENT
  Age: 75 Year
  Sex: Female
  Weight: 91 kg

DRUGS (36)
  1. HUMAN IMMUNOGLOBULIN G [Suspect]
     Active Substance: HUMAN IMMUNOGLOBULIN G
     Indication: Immunodeficiency common variable
     Dosage: 20 GRAM, Q2WEEKS
  2. HUMAN IMMUNOGLOBULIN G [Suspect]
     Active Substance: HUMAN IMMUNOGLOBULIN G
     Dosage: 20 GRAM, Q2WEEKS
  3. ACETAMINOPHEN [Concomitant]
     Active Substance: ACETAMINOPHEN
  4. LABETALOL [Concomitant]
     Active Substance: LABETALOL
  5. FISH OIL [Concomitant]
     Active Substance: FISH OIL
  6. PEPCID [Concomitant]
     Active Substance: FAMOTIDINE
  7. TRAZODONE HCL [Concomitant]
     Active Substance: TRAZODONE HYDROCHLORIDE
  8. MYCOPHENOLATE MOFETIL [Concomitant]
     Active Substance: MYCOPHENOLATE MOFETIL
  9. VOLTAREN ARTHRITIS PAIN [Concomitant]
     Active Substance: DICLOFENAC SODIUM
  10. HYDROXYZINE [Concomitant]
     Active Substance: HYDROXYZINE HYDROCHLORIDE
  11. NUVIGIL [Concomitant]
     Active Substance: ARMODAFINIL
  12. ALLOPURINOL [Concomitant]
     Active Substance: ALLOPURINOL
  13. COZAAR [Concomitant]
     Active Substance: LOSARTAN POTASSIUM
  14. WELCHOL [Concomitant]
     Active Substance: COLESEVELAM HYDROCHLORIDE
  15. CRESTOR [Concomitant]
     Active Substance: ROSUVASTATIN CALCIUM
  16. METFORMIN HYDROCHLORIDE [Concomitant]
     Active Substance: METFORMIN HYDROCHLORIDE
  17. VITAMIN D3 [Concomitant]
     Active Substance: CHOLECALCIFEROL
  18. Lmx [Concomitant]
  19. CELECOXIB [Concomitant]
     Active Substance: CELECOXIB
  20. PRAMIPEXOLE DIHYDROCHLORIDE [Concomitant]
     Active Substance: PRAMIPEXOLE DIHYDROCHLORIDE
  21. TYLENOL [Concomitant]
     Active Substance: ACETAMINOPHEN
  22. CYCLOBENZAPRINE HYDROCHLORIDE [Concomitant]
     Active Substance: CYCLOBENZAPRINE HYDROCHLORIDE
  23. AZELASTINE HYDROCHLORIDE [Concomitant]
     Active Substance: AZELASTINE HYDROCHLORIDE
  24. DIPHENHYDRAMINE [Concomitant]
     Active Substance: DIPHENHYDRAMINE
  25. EPINEPHRINE [Concomitant]
     Active Substance: EPINEPHRINE
  26. PROZAC [Concomitant]
     Active Substance: FLUOXETINE HYDROCHLORIDE
  27. ESTRADIOL [Concomitant]
     Active Substance: ESTRADIOL
  28. ZYRTEC [Concomitant]
     Active Substance: CETIRIZINE HYDROCHLORIDE
  29. METHOCARBAMOL [Concomitant]
     Active Substance: METHOCARBAMOL
  30. LABETALOL HYDROCHLORIDE [Concomitant]
     Active Substance: LABETALOL HYDROCHLORIDE
  31. HYDROXYZINE HYDROCHLORIDE [Concomitant]
     Active Substance: HYDROXYZINE HYDROCHLORIDE
  32. TRAZODONE [Concomitant]
     Active Substance: TRAZODONE HYDROCHLORIDE
  33. PAIN EASE [Concomitant]
     Active Substance: CAMPHOR OIL\MENTHOL\METHYL SALICYLATE
  34. CLARITIN [Concomitant]
     Active Substance: LORATADINE
  35. IMODIUM [Concomitant]
     Active Substance: LOPERAMIDE HYDROCHLORIDE
  36. FLONASE ALLERGY RELIEF [Concomitant]
     Active Substance: FLUTICASONE PROPIONATE

REACTIONS (41)
  - Osteomyelitis [Unknown]
  - Device related infection [Unknown]
  - Skin cancer [Unknown]
  - Body height decreased [Unknown]
  - Product dose omission issue [Unknown]
  - Fatigue [Not Recovered/Not Resolved]
  - Crying [Unknown]
  - Cyst [Unknown]
  - Loose body in joint [Unknown]
  - Dermatitis contact [Unknown]
  - Neuralgia [Unknown]
  - Splenomegaly [Unknown]
  - Infusion site injury [Unknown]
  - White blood cell disorder [Unknown]
  - COVID-19 [Not Recovered/Not Resolved]
  - Seasonal allergy [Not Recovered/Not Resolved]
  - Sinus headache [Unknown]
  - Infusion site discharge [Unknown]
  - Needle issue [Unknown]
  - Cystitis [Unknown]
  - Multiple allergies [Unknown]
  - Nasal congestion [Unknown]
  - Hypoaesthesia [Unknown]
  - Infusion site induration [Recovered/Resolved]
  - Vertigo [Unknown]
  - Urticaria [Unknown]
  - Oropharyngeal pain [Unknown]
  - Asthenia [Unknown]
  - Cough [Unknown]
  - Pain [Unknown]
  - Back pain [Unknown]
  - Infusion site swelling [Unknown]
  - Rash papular [Recovered/Resolved]
  - Infusion site pruritus [Unknown]
  - Lymphadenopathy [Unknown]
  - Infusion site pain [Unknown]
  - Post procedural infection [Unknown]
  - Infusion site erythema [Recovered/Resolved]
  - Infusion site scab [Recovered/Resolved]
  - Infusion site haemorrhage [Recovered/Resolved]
  - Postoperative wound infection [Unknown]

NARRATIVE: CASE EVENT DATE: 20230921
